FAERS Safety Report 9274570 (Version 3)
Quarter: 2013Q2

REPORT INFORMATION
  Report Type: Spontaneous
  Country: GB (occurrence: GB)
  Receive Date: 20130507
  Receipt Date: 20130517
  Transmission Date: 20140414
  Serious: Yes (Hospitalization)
  Sender: FDA-Public Use
  Company Number: GB-MERCK-1305GBR001954

PATIENT
  Sex: Female

DRUGS (1)
  1. SYCREST [Suspect]
     Dosage: UNK
     Route: 060

REACTIONS (2)
  - Disease recurrence [Unknown]
  - Incorrect route of drug administration [Unknown]
